FAERS Safety Report 25989914 (Version 1)
Quarter: 2025Q4

REPORT INFORMATION
  Report Type: Spontaneous
  Country: US (occurrence: None)
  Receive Date: 20251031
  Receipt Date: 20251031
  Transmission Date: 20260117
  Serious: Yes (Death)
  Sender: FDA-CTU
  Company Number: None

PATIENT
  Age: 85 Year
  Sex: Female

DRUGS (8)
  1. NOURIANZ [Suspect]
     Active Substance: ISTRADEFYLLINE
     Indication: Parkinson^s disease
     Route: 048
     Dates: start: 2023
  2. CLONAZEPAM [Concomitant]
     Active Substance: CLONAZEPAM
  3. ELIQUIS [Concomitant]
     Active Substance: APIXABAN
  4. Gocovri 137 mg ER [Concomitant]
  5. Levothyroxine 0.075 mg tablet [Concomitant]
  6. METOPROLOL SUCCINATE [Concomitant]
     Active Substance: METOPROLOL SUCCINATE
  7. MIRTAZAPINE [Concomitant]
     Active Substance: MIRTAZAPINE
  8. Sinemet CR 25-200 mg tablet [Concomitant]

REACTIONS (1)
  - Disease complication [None]

NARRATIVE: CASE EVENT DATE: 20251023
